FAERS Safety Report 5871019-9 (Version None)
Quarter: 2008Q3

REPORT INFORMATION
  Report Type: 
  Country: None (occurrence: None)
  Receive Date: 20080829
  Receipt Date: 20080818
  Transmission Date: 20090109
  Serious: Yes (Hospitalization)
  Sender: FDA-Public Use
  Company Number: 2007BI010506

PATIENT
  Age: 49 Year
  Sex: Female

DRUGS (3)
  1. TYSABRI [Suspect]
     Indication: MULTIPLE SCLEROSIS
     Dosage: IV; 300 MG;QM; IV
     Dates: start: 20050101, end: 20050101
  2. TYSABRI [Suspect]
     Indication: MULTIPLE SCLEROSIS
     Dosage: IV; 300 MG;QM; IV
     Dates: start: 20070228, end: 20070320
  3. TYSABRI [Suspect]
     Indication: MULTIPLE SCLEROSIS
     Dosage: IV; 300 MG;QM; IV
     Dates: start: 20080807, end: 20080807

REACTIONS (11)
  - ARTHRALGIA [None]
  - DEPRESSION [None]
  - FALL [None]
  - LOWER LIMB FRACTURE [None]
  - MIGRAINE [None]
  - MUSCLE SPASTICITY [None]
  - PAIN IN EXTREMITY [None]
  - SCAR [None]
  - UPPER LIMB FRACTURE [None]
  - VOMITING [None]
  - WALKING AID USER [None]
